FAERS Safety Report 20697367 (Version 1)
Quarter: 2022Q2

REPORT INFORMATION
  Report Type: Spontaneous
  Country: US (occurrence: US)
  Receive Date: 20220411
  Receipt Date: 20220411
  Transmission Date: 20220721
  Serious: No
  Sender: FDA-Public Use
  Company Number: US-PFIZER INC-2021769604

PATIENT
  Sex: Female

DRUGS (4)
  1. METHOTREXATE SODIUM [Suspect]
     Active Substance: METHOTREXATE SODIUM
     Dosage: UNK
     Route: 065
  2. ENBREL [Concomitant]
     Active Substance: ETANERCEPT
     Indication: Psoriatic arthropathy
     Dosage: 25 MG, 2X/WEEK
     Route: 065
     Dates: start: 1992
  3. ENBREL [Concomitant]
     Active Substance: ETANERCEPT
     Dosage: 50 MG, WEEKLY
     Route: 065
  4. ENBREL [Concomitant]
     Active Substance: ETANERCEPT
     Dosage: 25 MG, 2X/WEEK
     Route: 065

REACTIONS (2)
  - Drug ineffective [Unknown]
  - Illness [Unknown]
